FAERS Safety Report 5940002-7 (Version None)
Quarter: 2008Q4

REPORT INFORMATION
  Report Type: 
  Country: None (occurrence: None)
  Receive Date: 20081104
  Receipt Date: 20080214
  Transmission Date: 20090506
  Serious: Yes (Death)
  Sender: FDA-Public Use
  Company Number: KR-NOVOPROD-271717

PATIENT
  Sex: Female
  Weight: 55 kg

DRUGS (3)
  1. LEVEMIR [Suspect]
     Indication: INSULIN-REQUIRING TYPE 2 DIABETES MELLITUS
     Dosage: 26 IU, QD
     Route: 058
     Dates: start: 20071107
  2. KETOTOP                            /00321701/ [Concomitant]
     Indication: ARTHRITIS
     Dosage: UNK, PRN
     Dates: start: 20050817
  3. DIARYL                             /01249401/ [Concomitant]
     Indication: INSULIN-REQUIRING TYPE 2 DIABETES MELLITUS
     Dosage: 6 MG, UNK
     Route: 048
     Dates: start: 20071016

REACTIONS (1)
  - RESPIRATORY FAILURE [None]
